FAERS Safety Report 13513650 (Version 2)
Quarter: 2017Q2

REPORT INFORMATION
  Report Type: Spontaneous
  Country: CA (occurrence: CA)
  Receive Date: 20170504
  Receipt Date: 20170511
  Transmission Date: 20170830
  Serious: Yes (Life-Threatening, Other)
  Sender: FDA-Public Use
  Company Number: CA-AXELLIA-001080

PATIENT
  Age: 59 Year
  Sex: Female

DRUGS (5)
  1. CEFTAZIDIME/CEFTAZIDIME PENTAHYDRATE [Suspect]
     Active Substance: CEFTAZIDIME
     Indication: LISTERIOSIS
     Route: 033
  2. GENTAMICIN. [Suspect]
     Active Substance: GENTAMICIN
     Indication: LISTERIOSIS
  3. VANCOMYCIN [Suspect]
     Active Substance: VANCOMYCIN
     Indication: LISTERIOSIS
     Route: 033
  4. AMPICILLIN [Suspect]
     Active Substance: AMPICILLIN
     Indication: LISTERIOSIS
     Route: 042
  5. SULFAMETHOXAZOLE/TRIMETHOPRIM [Suspect]
     Active Substance: SULFAMETHOXAZOLE\TRIMETHOPRIM
     Indication: LISTERIOSIS
     Route: 042

REACTIONS (2)
  - General physical health deterioration [None]
  - Drug ineffective [Unknown]
